FAERS Safety Report 12933054 (Version 1)
Quarter: 2016Q4

REPORT INFORMATION
  Report Type: Spontaneous
  Country: US (occurrence: US)
  Receive Date: 20161111
  Receipt Date: 20161111
  Transmission Date: 20170207
  Serious: No
  Sender: FDA-Public Use
  Company Number: US-JNJFOC-20161015242

PATIENT
  Age: 25 Year
  Sex: Female
  Weight: 54.43 kg

DRUGS (2)
  1. ZYRTEC-D [Suspect]
     Active Substance: CETIRIZINE HYDROCHLORIDE\PSEUDOEPHEDRINE HYDROCHLORIDE
     Route: 048
  2. ZYRTEC-D [Suspect]
     Active Substance: CETIRIZINE HYDROCHLORIDE\PSEUDOEPHEDRINE HYDROCHLORIDE
     Indication: MULTIPLE ALLERGIES
     Route: 048
     Dates: start: 20161015

REACTIONS (4)
  - Malaise [Recovered/Resolved]
  - Somnolence [Recovered/Resolved]
  - Dizziness [Recovered/Resolved]
  - Nausea [Recovered/Resolved]

NARRATIVE: CASE EVENT DATE: 20161015
